FAERS Safety Report 4271269-1 (Version None)
Quarter: 2004Q1

REPORT INFORMATION
  Report Type: 
  Country: None (occurrence: None)
  Receive Date: 20040114
  Receipt Date: 20040114
  Transmission Date: 20041129
  Serious: Yes (Other)
  Sender: FDA-Public Use
  Company Number: None

PATIENT
  Sex: Female
  Weight: 66 kg

DRUGS (4)
  1. TAXOTERE [Suspect]
     Indication: LUNG NEOPLASM MALIGNANT
     Dosage: 62.28 MG 1 Q WK X 3 IC
     Route: 050
     Dates: start: 20031002, end: 20040106
  2. GEMCITABINE [Suspect]
     Indication: LUNG NEOPLASM MALIGNANT
     Dosage: 1038 MG 1 QWK  X 3 IV
     Route: 042
     Dates: start: 20031002, end: 20040106
  3. NEXIUM [Concomitant]
  4. L-CARNITINE [Concomitant]

REACTIONS (1)
  - NEUROPATHY PERIPHERAL [None]
